FAERS Safety Report 25961228 (Version 1)
Quarter: 2025Q4

REPORT INFORMATION
  Report Type: Spontaneous
  Country: DZ (occurrence: DZ)
  Receive Date: 20251027
  Receipt Date: 20251027
  Transmission Date: 20260118
  Serious: Yes (Death, Other)
  Sender: BRISTOL-MYERS SQUIBB COMPANY
  Company Number: DZ-BRISTOL-MYERS SQUIBB COMPANY-2025-145064

PATIENT
  Sex: Female

DRUGS (1)
  1. OPDIVO [Suspect]
     Active Substance: NIVOLUMAB
     Indication: Malignant melanoma
     Dosage: DOSE: 100MG ?40MG
     Route: 042
     Dates: start: 20250701

REACTIONS (4)
  - Seizure [Fatal]
  - Cortisol increased [Unknown]
  - Blood thyroid stimulating hormone increased [Unknown]
  - Troponin [Unknown]
